FAERS Safety Report 7240619-6 (Version None)
Quarter: 2011Q1

REPORT INFORMATION
  Report Type: 
  Country: None (occurrence: None)
  Receive Date: 20110120
  Receipt Date: 20110120
  Transmission Date: 20110831
  Serious: Yes (Other)
  Sender: FDA-Public Use
  Company Number: None

PATIENT
  Age: 62 Year
  Sex: Female
  Weight: 112.4921 kg

DRUGS (1)
  1. LEVOTHYROXINE SODIUM [Suspect]
     Indication: HYPERTHYROIDISM
     Dosage: WAS 75MG/MOW 50 MG 1X A DAY OTHERS 5 YRS.

REACTIONS (12)
  - EAR PRURITUS [None]
  - ALOPECIA [None]
  - NAUSEA [None]
  - CHEST PAIN [None]
  - NASOPHARYNGITIS [None]
  - DYSPEPSIA [None]
  - THROAT IRRITATION [None]
  - HYPOPHAGIA [None]
  - DYSPNOEA [None]
  - HEADACHE [None]
  - PAIN [None]
  - MYALGIA [None]
